FAERS Safety Report 4833654-6 (Version None)
Quarter: 2005Q4

REPORT INFORMATION
  Report Type: 
  Country: None (occurrence: None)
  Receive Date: 20051116
  Receipt Date: 20051104
  Transmission Date: 20060501
  Serious: Yes (Other)
  Sender: FDA-Public Use
  Company Number: FABR-11149

PATIENT
  Age: 54 Year
  Sex: Male
  Weight: 68.0396 kg

DRUGS (13)
  1. FABRAZYME [Suspect]
     Indication: FABRY'S DISEASE
     Dosage: 70 MG Q2WKS IV
     Route: 042
     Dates: start: 20040225
  2. TOPROL-XL [Concomitant]
  3. COZAAR [Concomitant]
  4. ASPIRIN [Concomitant]
  5. LIPITOR [Concomitant]
  6. GENGRAF [Concomitant]
  7. ENALAPRIL [Concomitant]
  8. CELLCEPT [Concomitant]
  9. PREDNISONE [Concomitant]
  10. CALCIUM GLUCONATE [Concomitant]
  11. VITAMIN E [Concomitant]
  12. ALLEGRA [Concomitant]
  13. TYLENOL [Concomitant]

REACTIONS (8)
  - ATRIAL FIBRILLATION [None]
  - CARDIAC ARREST [None]
  - CONVULSION [None]
  - DIZZINESS [None]
  - HYPOTENSION [None]
  - NERVOUS SYSTEM DISORDER [None]
  - SOMNOLENCE [None]
  - SYNCOPE [None]
